FAERS Safety Report 25745494 (Version 2)
Quarter: 2025Q4

REPORT INFORMATION
  Report Type: Spontaneous
  Country: CA (occurrence: CA)
  Receive Date: 20250901
  Receipt Date: 20251023
  Transmission Date: 20260117
  Serious: Yes (Congenital Anomaly)
  Sender: BRISTOL-MYERS SQUIBB COMPANY
  Company Number: CA-BRISTOL-MYERS SQUIBB COMPANY-2025-117485

PATIENT

DRUGS (193)
  1. ORENCIA [Suspect]
     Active Substance: ABATACEPT
     Indication: Product used for unknown indication
  2. ORENCIA [Suspect]
     Active Substance: ABATACEPT
  3. ORENCIA [Suspect]
     Active Substance: ABATACEPT
  4. ORENCIA [Suspect]
     Active Substance: ABATACEPT
     Indication: Product used for unknown indication
  5. ORENCIA [Suspect]
     Active Substance: ABATACEPT
     Indication: Product used for unknown indication
  6. ORENCIA [Suspect]
     Active Substance: ABATACEPT
  7. ACETAMINOPHEN [Concomitant]
     Active Substance: ACETAMINOPHEN
     Indication: Product used for unknown indication
  8. ACETAMINOPHEN [Concomitant]
     Active Substance: ACETAMINOPHEN
  9. ACETAMINOPHEN [Concomitant]
     Active Substance: ACETAMINOPHEN
  10. ACETAMINOPHEN [Concomitant]
     Active Substance: ACETAMINOPHEN
  11. ACETAMINOPHEN [Concomitant]
     Active Substance: ACETAMINOPHEN
  12. ACETAMINOPHEN [Concomitant]
     Active Substance: ACETAMINOPHEN
  13. ACTEMRA [Concomitant]
     Active Substance: TOCILIZUMAB
     Indication: Product used for unknown indication
  14. ACTEMRA [Concomitant]
     Active Substance: TOCILIZUMAB
  15. ACTEMRA [Concomitant]
     Active Substance: TOCILIZUMAB
  16. ACTEMRA [Concomitant]
     Active Substance: TOCILIZUMAB
  17. ACTEMRA [Concomitant]
     Active Substance: TOCILIZUMAB
  18. ACTEMRA [Concomitant]
     Active Substance: TOCILIZUMAB
  19. ACTEMRA [Concomitant]
     Active Substance: TOCILIZUMAB
  20. ADALIMUMAB [Concomitant]
     Active Substance: ADALIMUMAB
     Indication: Product used for unknown indication
  21. ADALIMUMAB [Concomitant]
     Active Substance: ADALIMUMAB
  22. ADALIMUMAB [Concomitant]
     Active Substance: ADALIMUMAB
     Dosage: SOLUTION?SUBCUTANEOUS
  23. ADVIL [Concomitant]
     Active Substance: IBUPROFEN
     Indication: Product used for unknown indication
     Dosage: CAPLETS
  24. ALENDRONIC ACID [Concomitant]
     Active Substance: ALENDRONIC ACID
     Indication: Product used for unknown indication
  25. ALENDRONIC ACID [Concomitant]
     Active Substance: ALENDRONIC ACID
  26. ALENDRONIC ACID [Concomitant]
     Active Substance: ALENDRONIC ACID
  27. ALENDRONIC ACID [Concomitant]
     Active Substance: ALENDRONIC ACID
  28. PANTOPRAZOLE SODIUM ANHYDROUS [Concomitant]
     Active Substance: PANTOPRAZOLE SODIUM ANHYDROUS
     Indication: Product used for unknown indication
  29. PANTOPRAZOLE SODIUM ANHYDROUS [Concomitant]
     Active Substance: PANTOPRAZOLE SODIUM ANHYDROUS
  30. PREDNISONE [Concomitant]
     Active Substance: PREDNISONE
     Indication: Product used for unknown indication
  31. PREDNISONE [Concomitant]
     Active Substance: PREDNISONE
  32. ARAVA [Concomitant]
     Active Substance: LEFLUNOMIDE
     Indication: Product used for unknown indication
  33. ARAVA [Concomitant]
     Active Substance: LEFLUNOMIDE
  34. ARAVA [Concomitant]
     Active Substance: LEFLUNOMIDE
  35. ARAVA [Concomitant]
     Active Substance: LEFLUNOMIDE
  36. ARAVA [Concomitant]
     Active Substance: LEFLUNOMIDE
  37. ARAVA [Concomitant]
     Active Substance: LEFLUNOMIDE
  38. ARAVA [Concomitant]
     Active Substance: LEFLUNOMIDE
  39. ASACOL [Concomitant]
     Active Substance: MESALAMINE
     Indication: Product used for unknown indication
  40. ATIVAN [Concomitant]
     Active Substance: LORAZEPAM
     Indication: Product used for unknown indication
  41. AZATHIOPRINE SODIUM [Concomitant]
     Active Substance: AZATHIOPRINE SODIUM
     Indication: Product used for unknown indication
  42. CAFFEINE [Concomitant]
     Active Substance: CAFFEINE
     Indication: Product used for unknown indication
  43. CAFFEINE CITRATE [Concomitant]
     Active Substance: CAFFEINE CITRATE
     Indication: Product used for unknown indication
  44. CALCIUM CARBONATE [Concomitant]
     Active Substance: CALCIUM CARBONATE
     Indication: Product used for unknown indication
  45. CELECOXIB [Concomitant]
     Active Substance: CELECOXIB
     Indication: Product used for unknown indication
  46. CELECOXIB [Concomitant]
     Active Substance: CELECOXIB
  47. CELECOXIB [Concomitant]
     Active Substance: CELECOXIB
  48. CELECOXIB [Concomitant]
     Active Substance: CELECOXIB
  49. CELECOXIB [Concomitant]
     Active Substance: CELECOXIB
  50. CELECOXIB [Concomitant]
     Active Substance: CELECOXIB
  51. CETIRIZINE [Concomitant]
     Active Substance: CETIRIZINE HYDROCHLORIDE
     Indication: Product used for unknown indication
  52. CETIRIZINE [Concomitant]
     Active Substance: CETIRIZINE HYDROCHLORIDE
  53. CETIRIZINE [Concomitant]
     Active Substance: CETIRIZINE HYDROCHLORIDE
  54. CHLORAPREP [Concomitant]
     Active Substance: CHLORHEXIDINE GLUCONATE\ISOPROPYL ALCOHOL
     Indication: Product used for unknown indication
  55. CHLORAPREP [Concomitant]
     Active Substance: CHLORHEXIDINE GLUCONATE\ISOPROPYL ALCOHOL
  56. CHLORHEXIDINE [Concomitant]
     Active Substance: CHLORHEXIDINE
     Indication: Product used for unknown indication
  57. CHLORHEXIDINE [Concomitant]
     Active Substance: CHLORHEXIDINE
  58. CHLORHEXIDINE [Concomitant]
     Active Substance: CHLORHEXIDINE
  59. CHLORHEXIDINE [Concomitant]
     Active Substance: CHLORHEXIDINE
  60. CHLORHEXIDINE [Concomitant]
     Active Substance: CHLORHEXIDINE
  61. CHOLECALCIFEROL [Concomitant]
     Active Substance: CHOLECALCIFEROL
     Indication: Product used for unknown indication
  62. CHOLECALCIFEROL [Concomitant]
     Active Substance: CHOLECALCIFEROL
  63. CIMZIA [Concomitant]
     Active Substance: CERTOLIZUMAB PEGOL
     Indication: Product used for unknown indication
  64. CIMZIA [Concomitant]
     Active Substance: CERTOLIZUMAB PEGOL
  65. CODEINE [Concomitant]
     Active Substance: CODEINE
     Indication: Product used for unknown indication
  66. COSENTYX [Concomitant]
     Active Substance: SECUKINUMAB
     Indication: Product used for unknown indication
  67. DESOXIMETASONE [Concomitant]
     Active Substance: DESOXIMETASONE
     Indication: Product used for unknown indication
  68. DESOXIMETASONE [Concomitant]
     Active Substance: DESOXIMETASONE
  69. DESOXIMETASONE [Concomitant]
     Active Substance: DESOXIMETASONE
  70. DESOXIMETASONE [Concomitant]
     Active Substance: DESOXIMETASONE
  71. DESOXIMETASONE [Concomitant]
     Active Substance: DESOXIMETASONE
  72. DICLOFENAC POTASSIUM [Concomitant]
     Active Substance: DICLOFENAC POTASSIUM
     Indication: Product used for unknown indication
  73. DICLOFENAC SODIUM [Concomitant]
     Active Substance: DICLOFENAC SODIUM
     Indication: Product used for unknown indication
  74. DICLOFENAC SODIUM [Concomitant]
     Active Substance: DICLOFENAC SODIUM
  75. DICLOFENAC SODIUM [Concomitant]
     Active Substance: DICLOFENAC SODIUM
  76. DICLOFENAC SODIUM [Concomitant]
     Active Substance: DICLOFENAC SODIUM
  77. DICLOFENAC SODIUM [Concomitant]
     Active Substance: DICLOFENAC SODIUM
  78. DIPHENHYDRAMINE HYDROCHLORIDE [Concomitant]
     Active Substance: DIPHENHYDRAMINE HYDROCHLORIDE
     Indication: Product used for unknown indication
  79. DOXYCYCLINE HYCLATE [Concomitant]
     Active Substance: DOXYCYCLINE HYCLATE
     Indication: Product used for unknown indication
  80. DOXYCYCLINE HYCLATE [Concomitant]
     Active Substance: DOXYCYCLINE HYCLATE
  81. ENBREL [Concomitant]
     Active Substance: ETANERCEPT
     Indication: Product used for unknown indication
  82. ENBREL [Concomitant]
     Active Substance: ETANERCEPT
  83. ENBREL [Concomitant]
     Active Substance: ETANERCEPT
  84. ENBREL [Concomitant]
     Active Substance: ETANERCEPT
  85. ENBREL [Concomitant]
     Active Substance: ETANERCEPT
  86. ENBREL [Concomitant]
     Active Substance: ETANERCEPT
  87. ENBREL [Concomitant]
     Active Substance: ETANERCEPT
  88. ERELZI [Concomitant]
     Active Substance: ETANERCEPT-SZZS
     Indication: Product used for unknown indication
  89. ERGOCALCIFEROL [Concomitant]
     Active Substance: ERGOCALCIFEROL
     Indication: Product used for unknown indication
  90. ERYTHROMYCIN [Concomitant]
     Active Substance: ERYTHROMYCIN
     Indication: Product used for unknown indication
  91. FLUOROMETHOLONE [Concomitant]
     Active Substance: FLUOROMETHOLONE
     Indication: Product used for unknown indication
  92. FOLIC ACID [Concomitant]
     Active Substance: FOLIC ACID
     Indication: Product used for unknown indication
  93. FOLIC ACID [Concomitant]
     Active Substance: FOLIC ACID
  94. FOLIC ACID [Concomitant]
     Active Substance: FOLIC ACID
  95. FOLIC ACID [Concomitant]
     Active Substance: FOLIC ACID
  96. FOLIC ACID [Concomitant]
     Active Substance: FOLIC ACID
  97. FOLIC ACID [Concomitant]
     Active Substance: FOLIC ACID
  98. FOLIC ACID [Concomitant]
     Active Substance: FOLIC ACID
  99. FOLIC ACID [Concomitant]
     Active Substance: FOLIC ACID
  100. FOLIC ACID [Concomitant]
     Active Substance: FOLIC ACID
  101. FOSAMAX [Concomitant]
     Active Substance: ALENDRONATE SODIUM
     Indication: Product used for unknown indication
  102. FOSAMAX [Concomitant]
     Active Substance: ALENDRONATE SODIUM
  103. FOSAMAX [Concomitant]
     Active Substance: ALENDRONATE SODIUM
  104. FOSAPREPITANT [Concomitant]
     Active Substance: FOSAPREPITANT
     Indication: Product used for unknown indication
  105. GLUCOSAMINE [Concomitant]
     Active Substance: GLUCOSAMINE
     Indication: Product used for unknown indication
  106. HUMIRA [Concomitant]
     Active Substance: ADALIMUMAB
     Indication: Product used for unknown indication
  107. HUMIRA [Concomitant]
     Active Substance: ADALIMUMAB
  108. HUMIRA [Concomitant]
     Active Substance: ADALIMUMAB
  109. HUMIRA [Concomitant]
     Active Substance: ADALIMUMAB
  110. HYALURONIDASE [Concomitant]
     Active Substance: HYALURONIDASE
     Indication: Product used for unknown indication
  111. INFLIXIMAB [Concomitant]
     Active Substance: INFLIXIMAB
     Indication: Product used for unknown indication
  112. ISOPROPYL ALCOHOL [Concomitant]
     Active Substance: ISOPROPYL ALCOHOL
     Indication: Product used for unknown indication
     Dosage: LIQUID
  113. LANSOPRAZOLE [Concomitant]
     Active Substance: LANSOPRAZOLE
     Indication: Product used for unknown indication
     Dosage: CAPSULE DELAYED RELEASE
  114. LEFLUNOMIDE [Concomitant]
     Active Substance: LEFLUNOMIDE
     Indication: Product used for unknown indication
  115. LISINOPRIL [Concomitant]
     Active Substance: LISINOPRIL
     Indication: Product used for unknown indication
  116. CLIOQUINOL\FLUMETHASONE [Concomitant]
     Active Substance: CLIOQUINOL\FLUMETHASONE
     Indication: Product used for unknown indication
  117. LORAZEPAM [Concomitant]
     Active Substance: LORAZEPAM
     Indication: Product used for unknown indication
  118. MAGNESIUM [Concomitant]
     Active Substance: MAGNESIUM
     Indication: Product used for unknown indication
  119. MELOXICAM [Concomitant]
     Active Substance: MELOXICAM
     Indication: Product used for unknown indication
  120. MESALAMINE [Concomitant]
     Active Substance: MESALAMINE
     Indication: Product used for unknown indication
  121. METHOTREXATE [Concomitant]
     Active Substance: METHOTREXATE
     Indication: Product used for unknown indication
  122. METHOTREXATE [Concomitant]
     Active Substance: METHOTREXATE
  123. METHOTREXATE [Concomitant]
     Active Substance: METHOTREXATE
  124. METHOTREXATE [Concomitant]
     Active Substance: METHOTREXATE
  125. METHOTREXATE [Concomitant]
     Active Substance: METHOTREXATE
  126. METHOTREXATE [Concomitant]
     Active Substance: METHOTREXATE
  127. METHOTREXATE [Concomitant]
     Active Substance: METHOTREXATE
  128. MORPHINE [Concomitant]
     Active Substance: MORPHINE
     Indication: Product used for unknown indication
  129. MYCOPHENOLATE MOFETIL [Concomitant]
     Active Substance: MYCOPHENOLATE MOFETIL
     Indication: Product used for unknown indication
  130. NAPROXEN SODIUM [Concomitant]
     Active Substance: NAPROXEN SODIUM
     Indication: Product used for unknown indication
  131. NAPROXEN SODIUM [Concomitant]
     Active Substance: NAPROXEN SODIUM
  132. OTEZLA [Concomitant]
     Active Substance: APREMILAST
     Indication: Product used for unknown indication
  133. OTEZLA [Concomitant]
     Active Substance: APREMILAST
  134. OTEZLA [Concomitant]
     Active Substance: APREMILAST
  135. PHTHALYLSULFATHIAZOLE [Concomitant]
     Active Substance: PHTHALYLSULFATHIAZOLE
     Indication: Product used for unknown indication
  136. PHTHALYLSULFATHIAZOLE [Concomitant]
     Active Substance: PHTHALYLSULFATHIAZOLE
  137. PHTHALYLSULFATHIAZOLE [Concomitant]
     Active Substance: PHTHALYLSULFATHIAZOLE
  138. PLAQUENIL [Concomitant]
     Active Substance: HYDROXYCHLOROQUINE SULFATE
     Indication: Product used for unknown indication
  139. PLAQUENIL [Concomitant]
     Active Substance: HYDROXYCHLOROQUINE SULFATE
  140. PREDNISONE [Concomitant]
     Active Substance: PREDNISONE
     Indication: Product used for unknown indication
  141. PREDNISONE [Concomitant]
     Active Substance: PREDNISONE
  142. PREDNISONE [Concomitant]
     Active Substance: PREDNISONE
  143. PREDNISONE [Concomitant]
     Active Substance: PREDNISONE
  144. PREGABALIN [Concomitant]
     Active Substance: PREGABALIN
     Indication: Product used for unknown indication
  145. PREGABALIN [Concomitant]
     Active Substance: PREGABALIN
  146. PREVACID [Concomitant]
     Active Substance: LANSOPRAZOLE
     Indication: Product used for unknown indication
  147. PSEUDOEPHEDRINE HYDROCHLORIDE [Concomitant]
     Active Substance: PSEUDOEPHEDRINE HYDROCHLORIDE
     Indication: Product used for unknown indication
  148. PSEUDOEPHEDRINE HYDROCHLORIDE [Concomitant]
     Active Substance: PSEUDOEPHEDRINE HYDROCHLORIDE
  149. PSEUDOEPHEDRINE HYDROCHLORIDE [Concomitant]
     Active Substance: PSEUDOEPHEDRINE HYDROCHLORIDE
  150. PSEUDOEPHEDRINE HYDROCHLORIDE [Concomitant]
     Active Substance: PSEUDOEPHEDRINE HYDROCHLORIDE
  151. QUETIAPINE FUMARATE [Concomitant]
     Active Substance: QUETIAPINE FUMARATE
     Indication: Product used for unknown indication
  152. RAMIPRIL [Concomitant]
     Active Substance: RAMIPRIL
     Indication: Product used for unknown indication
  153. REACTINE [Concomitant]
     Indication: Product used for unknown indication
  154. REACTINE [Concomitant]
  155. REACTINE [Concomitant]
  156. REACTINE [Concomitant]
  157. RITUXIMAB [Concomitant]
     Active Substance: RITUXIMAB
     Indication: Product used for unknown indication
  158. RITUXIMAB [Concomitant]
     Active Substance: RITUXIMAB
  159. SULFASALAZINE [Concomitant]
     Active Substance: SULFASALAZINE
     Indication: Product used for unknown indication
  160. SULFASALAZINE [Concomitant]
     Active Substance: SULFASALAZINE
  161. ALBUTEROL [Concomitant]
     Active Substance: ALBUTEROL
     Indication: Product used for unknown indication
  162. SIMPONI [Concomitant]
     Active Substance: GOLIMUMAB
     Indication: Product used for unknown indication
  163. SIMPONI [Concomitant]
     Active Substance: GOLIMUMAB
  164. AMINOSALICYLATE SODIUM [Concomitant]
     Active Substance: AMINOSALICYLATE SODIUM
     Indication: Product used for unknown indication
  165. STELARA [Concomitant]
     Active Substance: USTEKINUMAB
     Indication: Product used for unknown indication
  166. SULFASALAZINE [Concomitant]
     Active Substance: SULFASALAZINE
     Indication: Product used for unknown indication
  167. SULFASALAZINE [Concomitant]
     Active Substance: SULFASALAZINE
  168. SULFASALAZINE [Concomitant]
     Active Substance: SULFASALAZINE
  169. SULFASALAZINE [Concomitant]
     Active Substance: SULFASALAZINE
  170. SULFASALAZINE [Concomitant]
     Active Substance: SULFASALAZINE
  171. SULFASALAZINE [Concomitant]
     Active Substance: SULFASALAZINE
  172. SULFASALAZINE [Concomitant]
     Active Substance: SULFASALAZINE
  173. SULFASALAZINE [Concomitant]
     Active Substance: SULFASALAZINE
  174. SULFASALAZINE [Concomitant]
     Active Substance: SULFASALAZINE
  175. SULFASALAZINE [Concomitant]
     Active Substance: SULFASALAZINE
  176. TOFACITINIB [Concomitant]
     Active Substance: TOFACITINIB
     Indication: Product used for unknown indication
  177. TUMS [Concomitant]
     Active Substance: CALCIUM CARBONATE
     Indication: Product used for unknown indication
  178. VITAMIN C [Concomitant]
     Active Substance: ASCORBIC ACID
     Indication: Product used for unknown indication
  179. XELJANZ [Concomitant]
     Active Substance: TOFACITINIB CITRATE
     Indication: Product used for unknown indication
  180. XELJANZ [Concomitant]
     Active Substance: TOFACITINIB CITRATE
  181. ZESTRIL [Concomitant]
     Active Substance: LISINOPRIL
     Indication: Product used for unknown indication
  182. PERCOCET [Concomitant]
     Active Substance: ACETAMINOPHEN\OXYCODONE HYDROCHLORIDE
     Indication: Product used for unknown indication
  183. PERCOCET [Concomitant]
     Active Substance: ACETAMINOPHEN\OXYCODONE HYDROCHLORIDE
  184. FLUMETHASONE\SALICYLIC ACID [Concomitant]
     Active Substance: FLUMETHASONE\SALICYLIC ACID
     Indication: Product used for unknown indication
  185. FOSAPREPITANT DIMEGLUMINE [Concomitant]
     Active Substance: FOSAPREPITANT DIMEGLUMINE
     Indication: Product used for unknown indication
  186. CALCIUM [Concomitant]
     Active Substance: CALCIUM
     Indication: Product used for unknown indication
  187. DIPHENHYDRAMINE [Concomitant]
     Active Substance: DIPHENHYDRAMINE
     Indication: Product used for unknown indication
  188. FLUMETHASONE PIVALATE [Concomitant]
     Active Substance: FLUMETHASONE PIVALATE
     Indication: Product used for unknown indication
  189. PANTOPRAZOLE SODIUM [Concomitant]
     Active Substance: PANTOPRAZOLE SODIUM
     Indication: Product used for unknown indication
  190. PANTOPRAZOLE SODIUM [Concomitant]
     Active Substance: PANTOPRAZOLE SODIUM
  191. PANTOPRAZOLE SODIUM [Concomitant]
     Active Substance: PANTOPRAZOLE SODIUM
  192. PARA-AMINOSALICYLIC ACID [Concomitant]
     Active Substance: AMINOSALICYLIC ACID
     Indication: Product used for unknown indication
  193. DOXYCYCLINE [Concomitant]
     Active Substance: DOXYCYCLINE
     Indication: Product used for unknown indication

REACTIONS (2)
  - Foetal exposure during pregnancy [Unknown]
  - Congenital anomaly [Unknown]
